FAERS Safety Report 6312975-4 (Version None)
Quarter: 2009Q3

REPORT INFORMATION
  Report Type: 
  Country: None (occurrence: None)
  Receive Date: 20090818
  Receipt Date: 20090616
  Transmission Date: 20100115
  Serious: No
  Sender: FDA-Public Use
  Company Number: US-BAYER-200923905NA

PATIENT
  Sex: Female

DRUGS (2)
  1. YAZ [Suspect]
     Indication: DRUG USE FOR UNKNOWN INDICATION
     Dosage: TOTAL DAILY DOSE: 1 DF
     Route: 048
  2. UNKNOWN DRUG FOR TREATMENT OF GALLBLADDER NOS [Concomitant]
     Indication: GALLBLADDER DISORDER

REACTIONS (1)
  - HEADACHE [None]
